FAERS Safety Report 8178152 (Version 8)
Quarter: 2014Q3

REPORT INFORMATION
  Report Type: Report from Study
  Country: BR (occurrence: BR)
  Receive Date: 20111012
  Receipt Date: 20140806
  Transmission Date: 20150326
  Serious: Yes (Hospitalization, Other)
  Sender: FDA-Public Use
  Company Number: BR-ROCHE-711105

PATIENT
  Age: 38 Year
  Sex: Female
  Weight: 91.4 kg

DRUGS (28)
  1. MABTHERA [Suspect]
     Active Substance: RITUXIMAB
     Indication: SYSTEMIC LUPUS ERYTHEMATOSUS
     Dosage: DOSE: 1000 MG/ML
     Route: 042
  2. MABTHERA [Suspect]
     Active Substance: RITUXIMAB
     Dosage: DOSE:1000 MG/ML
     Route: 042
     Dates: start: 20100701, end: 20100715
  3. DIOVAN [Concomitant]
     Active Substance: VALSARTAN
     Route: 065
  4. OMEPRAZOLE. [Concomitant]
     Active Substance: OMEPRAZOLE
     Route: 065
  5. HYDROCORTISONE. [Concomitant]
     Active Substance: HYDROCORTISONE
  6. MABTHERA [Suspect]
     Active Substance: RITUXIMAB
     Dosage: DOSE:1000 MG/ML
     Route: 042
     Dates: start: 201011, end: 201011
  7. SERETIDE [Concomitant]
     Active Substance: FLUTICASONE FUROATE\SALMETEROL XINAFOATE
     Route: 065
  8. APRESOLINE HYDROCHLORIDE [Concomitant]
     Active Substance: HYDRALAZINE HYDROCHLORIDE
     Route: 065
  9. ATENSINA [Concomitant]
     Active Substance: CLONIDINE
     Route: 065
  10. VENLIFT [Concomitant]
     Active Substance: VENLAFAXINE HYDROCHLORIDE
     Route: 065
  11. MONOCORDIL [Concomitant]
     Active Substance: ISOSORBIDE MONONITRATE
  12. DIMORF [Concomitant]
     Active Substance: MORPHINE SULFATE
  13. CELLCEPT [Concomitant]
     Active Substance: MYCOPHENOLATE MOFETIL\MYCOPHENOLATE MOFETIL HYDROCHLORIDE
     Route: 065
  14. MABTHERA [Suspect]
     Active Substance: RITUXIMAB
     Dosage: DOSE:1000 MG/ML LAST INFUSION RECEIVED  IN OCT/2012
     Route: 042
     Dates: start: 20110923, end: 20110923
  15. LIVIAL [Concomitant]
     Active Substance: TIBOLONE
     Route: 065
  16. SYNTHROID [Concomitant]
     Active Substance: LEVOTHYROXINE SODIUM
     Route: 065
  17. MABTHERA [Suspect]
     Active Substance: RITUXIMAB
     Dosage: DOSE: 1000 MG/ML
     Route: 042
     Dates: start: 2008, end: 200812
  18. SPIRIVA [Concomitant]
     Active Substance: TIOTROPIUM BROMIDE MONOHYDRATE
  19. MIOSAN [Concomitant]
     Active Substance: CYCLOBENZAPRINE
  20. LONITEN [Concomitant]
     Active Substance: MINOXIDIL
  21. TRILEPTAL [Suspect]
     Active Substance: OXCARBAZEPINE
     Indication: CONVULSION
     Route: 065
  22. METICORTEN [Concomitant]
     Active Substance: PREDNISONE
     Route: 065
  23. LEUKERAN [Concomitant]
     Active Substance: CHLORAMBUCIL
     Route: 065
  24. METICORTEN [Concomitant]
     Active Substance: PREDNISONE
     Route: 065
  25. DOMPERIDONE [Concomitant]
     Active Substance: DOMPERIDONE
     Route: 065
  26. SERETIDE [Concomitant]
     Active Substance: FLUTICASONE FUROATE\SALMETEROL XINAFOATE
     Route: 065
  27. LYRICA [Concomitant]
     Active Substance: PREGABALIN
     Route: 065
  28. ADALAT [Concomitant]
     Active Substance: NIFEDIPINE
     Route: 065

REACTIONS (26)
  - Pain [Not Recovered/Not Resolved]
  - Nephrolithiasis [Unknown]
  - Breast disorder [Recovered/Resolved]
  - Pyrexia [Unknown]
  - Headache [Not Recovered/Not Resolved]
  - Vomiting [Unknown]
  - Blood immunoglobulin G decreased [Unknown]
  - Asthenia [Not Recovered/Not Resolved]
  - Drug ineffective [Unknown]
  - Autoimmune hepatitis [Unknown]
  - Mastitis [Recovered/Resolved]
  - Syncope [Recovered/Resolved]
  - Urinary tract infection [Not Recovered/Not Resolved]
  - Intervertebral disc protrusion [Unknown]
  - Systemic lupus erythematosus [Unknown]
  - Systemic lupus erythematosus [Not Recovered/Not Resolved]
  - Hypotension [Unknown]
  - Hypogammaglobulinaemia [Not Recovered/Not Resolved]
  - Immunodeficiency [Not Recovered/Not Resolved]
  - Hepatitis C [Unknown]
  - Hypoglobulinaemia [Unknown]
  - Immunoglobulins abnormal [Not Recovered/Not Resolved]
  - Hypertensive crisis [Unknown]
  - Chromaturia [Unknown]
  - Chills [Unknown]
  - Systemic lupus erythematosus [Not Recovered/Not Resolved]

NARRATIVE: CASE EVENT DATE: 200906
